FAERS Safety Report 6171257-4 (Version None)
Quarter: 2009Q2

REPORT INFORMATION
  Report Type: 
  Country: None (occurrence: None)
  Receive Date: 20090429
  Receipt Date: 20090422
  Transmission Date: 20091009
  Serious: Yes (Hospitalization)
  Sender: FDA-Public Use
  Company Number: FR-ASTRAZENECA-2009CG00812

PATIENT
  Age: 83 Year
  Sex: Female

DRUGS (10)
  1. TENORMIN [Suspect]
     Indication: CARDIAC FAILURE
     Route: 048
     Dates: start: 20090220, end: 20090306
  2. NEXIUM [Suspect]
     Indication: CARDIAC FAILURE
     Route: 048
     Dates: start: 20090220, end: 20090306
  3. TAHOR [Suspect]
     Indication: CARDIAC FAILURE
     Route: 048
     Dates: start: 20090220, end: 20090318
  4. DIAMICRON [Suspect]
     Indication: CARDIAC FAILURE
     Route: 048
     Dates: start: 20090220, end: 20090320
  5. LASIX [Suspect]
     Indication: CARDIAC FAILURE
     Route: 048
     Dates: start: 20090220, end: 20090320
  6. AMLODIPINE BESYLATE [Suspect]
     Indication: CARDIAC FAILURE
     Route: 048
     Dates: start: 20090220, end: 20090306
  7. ZOLPIDEM TARTRATE [Concomitant]
     Route: 048
  8. KARDEGIC [Concomitant]
     Route: 048
  9. RISORDAN [Concomitant]
     Indication: CARDIAC FAILURE
     Route: 048
     Dates: start: 20090304
  10. LOVENOX [Concomitant]
     Indication: CARDIAC FAILURE
     Route: 058
     Dates: start: 20090304

REACTIONS (1)
  - STEVENS-JOHNSON SYNDROME [None]
